FAERS Safety Report 23269895 (Version 1)
Quarter: 2023Q4

REPORT INFORMATION
  Report Type: Spontaneous
  Country: FR (occurrence: FR)
  Receive Date: 20231207
  Receipt Date: 20231207
  Transmission Date: 20240110
  Serious: Yes (Life-Threatening)
  Sender: FDA-Public Use
  Company Number: None

PATIENT
  Age: 71 Year
  Sex: Female
  Weight: 46 kg

DRUGS (4)
  1. METHOTREXATE SODIUM [Interacting]
     Active Substance: METHOTREXATE SODIUM
     Indication: Rheumatoid arthritis
     Dates: end: 202301
  2. PREDNISONE [Interacting]
     Active Substance: PREDNISONE
     Indication: Autoimmune haemolytic anaemia
  3. RITUXIMAB [Interacting]
     Active Substance: RITUXIMAB
     Indication: Autoimmune haemolytic anaemia
     Dates: start: 20230109, end: 20230124
  4. METHYLPREDNISOLONE [Interacting]
     Active Substance: METHYLPREDNISOLONE
     Indication: Autoimmune haemolytic anaemia
     Dates: start: 202301, end: 202301

REACTIONS (3)
  - Drug interaction [Recovered/Resolved]
  - Mycoplasma test positive [Recovered/Resolved]
  - Pneumocystis jirovecii pneumonia [Recovered/Resolved]
